FAERS Safety Report 7272336-0 (Version None)
Quarter: 2011Q1

REPORT INFORMATION
  Report Type: 
  Country: None (occurrence: None)
  Receive Date: 20110203
  Receipt Date: 20110128
  Transmission Date: 20110831
  Serious: Yes (Death, Hospitalization)
  Sender: FDA-Public Use
  Company Number: PHHY2010US78280

PATIENT
  Sex: Female
  Weight: 69.841 kg

DRUGS (2)
  1. GLEEVEC [Suspect]
     Indication: ACUTE LYMPHOCYTIC LEUKAEMIA
     Dosage: 800 MG, QD
     Route: 048
     Dates: start: 20100510, end: 20100521
  2. GLEEVEC [Suspect]
     Indication: CHROMOSOME ANALYSIS ABNORMAL
     Dosage: 400 MG, QD
     Dates: start: 20100622

REACTIONS (9)
  - HYPOMAGNESAEMIA [None]
  - DEATH [None]
  - RENAL FAILURE ACUTE [None]
  - OEDEMA [None]
  - INCORRECT DOSE ADMINISTERED [None]
  - JAUNDICE [None]
  - FAILURE TO THRIVE [None]
  - CARDIAC FAILURE CONGESTIVE [None]
  - HYPOKALAEMIA [None]
